FAERS Safety Report 6249778-5 (Version None)
Quarter: 2009Q2

REPORT INFORMATION
  Report Type: 
  Country: None (occurrence: None)
  Receive Date: 20090624
  Receipt Date: 20090615
  Transmission Date: 20091009
  Serious: Yes (Other)
  Sender: FDA-Public Use
  Company Number: 304280

PATIENT
  Age: 80 Year
  Sex: Female

DRUGS (7)
  1. DOBUTAMINE HCL [Suspect]
     Indication: STRESS ECHOCARDIOGRAM
     Dosage: 5 UG/KG PER MIN, INCREASED STEPWISE TO 40 UG/KG PER MIN, EVERY 3 MIN ; INTRAVENOUS DRIP
     Route: 041
  2. (METOPROLOL) [Suspect]
     Indication: ANGINA UNSTABLE
  3. (ORGANIC NITRATES) [Concomitant]
  4. ASPIRIN [Concomitant]
  5. RAMIPRIL [Concomitant]
  6. (HEPARIN) [Concomitant]
  7. SIMVASTATIN [Concomitant]

REACTIONS (4)
  - AKINESIA [None]
  - ARTERIOSPASM CORONARY [None]
  - MYOCARDIAL ISCHAEMIA [None]
  - SINUS TACHYCARDIA [None]
